FAERS Safety Report 18962553 (Version 1)
Quarter: 2021Q1

REPORT INFORMATION
  Report Type: Spontaneous
  Country: US (occurrence: US)
  Receive Date: 20210225
  Receipt Date: 20210225
  Transmission Date: 20210420
  Serious: Yes (Other)
  Sender: FDA-Public Use
  Company Number: None

PATIENT
  Age: 71 Year
  Sex: Female

DRUGS (1)
  1. TRIFERIC [Suspect]
     Active Substance: FERRIC PYROPHOSPHATE CITRATE
     Indication: MINERAL SUPPLEMENTATION
     Dosage: ?          OTHER FREQUENCY:Q HD;?
     Route: 010
     Dates: start: 20210213, end: 20210213

REACTIONS (2)
  - Dialysis [None]
  - Thrombosis in device [None]

NARRATIVE: CASE EVENT DATE: 20210213
